FAERS Safety Report 7048003-5 (Version None)
Quarter: 2010Q4

REPORT INFORMATION
  Report Type: 
  Country: None (occurrence: None)
  Receive Date: 20101015
  Receipt Date: 20101008
  Transmission Date: 20110411
  Serious: Yes (Hospitalization)
  Sender: FDA-Public Use
  Company Number: A0885660A

PATIENT
  Sex: Male

DRUGS (8)
  1. LAMICTAL [Suspect]
     Indication: PANIC ATTACK
     Route: 048
     Dates: start: 20100620
  2. LAMOTRIGINE [Suspect]
     Indication: PANIC ATTACK
     Route: 048
  3. SIMVASTATIN [Concomitant]
  4. LORAZEPAM [Concomitant]
  5. IMDUR [Concomitant]
  6. METOPROLOL [Concomitant]
  7. LISINOPRIL [Concomitant]
  8. ASPIRIN [Concomitant]

REACTIONS (5)
  - ASTHENIA [None]
  - GAIT DISTURBANCE [None]
  - HYPOAESTHESIA [None]
  - OFF LABEL USE [None]
  - TREMOR [None]
